FAERS Safety Report 11509848 (Version 1)
Quarter: 2015Q3

REPORT INFORMATION
  Report Type: Spontaneous
  Country: US (occurrence: US)
  Receive Date: 20150915
  Receipt Date: 20150915
  Transmission Date: 20151125
  Serious: No
  Sender: FDA-Public Use
  Company Number: US-JNJFOC-20150111585

PATIENT
  Age: 1 Decade
  Sex: Female
  Weight: 19.05 kg

DRUGS (2)
  1. CHILDRENS IBUPROFEN ORAL SUSPENSION [Suspect]
     Active Substance: IBUPROFEN
     Route: 048
  2. CHILDRENS IBUPROFEN ORAL SUSPENSION [Suspect]
     Active Substance: IBUPROFEN
     Indication: PRODUCT USED FOR UNKNOWN INDICATION
     Route: 048
     Dates: start: 20140510

REACTIONS (1)
  - Accidental exposure to product by child [Unknown]

NARRATIVE: CASE EVENT DATE: 20140510
